FAERS Safety Report 8557686-X (Version None)
Quarter: 2012Q3

REPORT INFORMATION
  Report Type: 
  Country: None (occurrence: None)
  Receive Date: 20120801
  Receipt Date: 20120723
  Transmission Date: 20120928
  Serious: Yes (Other)
  Sender: FDA-Public Use
  Company Number: FR-ASTRAZENECA-2012SE52377

PATIENT
  Age: 783 Month
  Sex: Female

DRUGS (1)
  1. FASLODEX [Suspect]
     Indication: BREAST CANCER
     Dosage: 250 MG/5 ML, 250 MG WITH UNKNOWN FREQUENCY
     Route: 030
     Dates: start: 20100719

REACTIONS (2)
  - ASTHENIA [None]
  - MUSCLE CONTRACTURE [None]
